FAERS Safety Report 15826813 (Version 13)
Quarter: 2022Q2

REPORT INFORMATION
  Report Type: Spontaneous
  Country: US (occurrence: US)
  Receive Date: 20190115
  Receipt Date: 20220607
  Transmission Date: 20220721
  Serious: Yes (Other)
  Sender: FDA-Public Use
  Company Number: PHEH2019US001311

PATIENT
  Age: 12 Year
  Sex: Female
  Weight: 37.7 kg

DRUGS (73)
  1. KYMRIAH [Suspect]
     Active Substance: TISAGENLECLEUCEL
     Indication: Acute lymphocytic leukaemia
     Dosage: UNK UNK, ONCE/SINGLE 2.3X10E6 CAR T-CELLS/KG BODY WEIGHT
     Route: 042
     Dates: start: 20181231
  2. KETAMINE [Concomitant]
     Active Substance: KETAMINE
     Indication: Product used for unknown indication
     Dosage: UNK
     Route: 041
  3. HYDROMORPHONE [Concomitant]
     Active Substance: HYDROMORPHONE
     Indication: Product used for unknown indication
     Dosage: UNK
     Route: 065
  4. AMIKACIN [Concomitant]
     Active Substance: AMIKACIN
     Indication: Antibiotic therapy
     Dosage: 85 MG, ONCE/SINGLE
     Route: 042
     Dates: start: 20190103, end: 20190103
  5. LINEZOLID [Concomitant]
     Active Substance: LINEZOLID
     Indication: Product used for unknown indication
     Dosage: 340 MG, UNK
     Route: 042
     Dates: start: 20190102, end: 20190103
  6. MEROPENEM [Concomitant]
     Active Substance: MEROPENEM
     Indication: Product used for unknown indication
     Dosage: 750 MG, UNK
     Route: 042
     Dates: start: 20190102, end: 20190107
  7. SULFAMETHOXAZOLE\TRIMETHOPRIM [Concomitant]
     Active Substance: SULFAMETHOXAZOLE\TRIMETHOPRIM
     Indication: Product used for unknown indication
     Dosage: 90 MG, BID
     Route: 048
  8. VORICONAZOLE [Concomitant]
     Active Substance: VORICONAZOLE
     Indication: Product used for unknown indication
     Dosage: 320 MG, UNK
     Route: 042
  9. LORATADINE [Concomitant]
     Active Substance: LORATADINE
     Indication: Hypersensitivity
     Dosage: 5 MG, Q24H
     Route: 048
     Dates: start: 20181213
  10. ESCITALOPRAM [Concomitant]
     Active Substance: ESCITALOPRAM OXALATE
     Indication: Anxiety
     Dosage: 5 MG, Q24H
     Route: 048
     Dates: start: 20181213, end: 20190103
  11. ESCITALOPRAM [Concomitant]
     Active Substance: ESCITALOPRAM OXALATE
     Dosage: 2.5 MG, Q24H
     Route: 048
     Dates: start: 20190103, end: 20190103
  12. GABAPENTIN [Concomitant]
     Active Substance: GABAPENTIN
     Indication: Pain
     Dosage: 400 MG, Q12H
     Route: 048
     Dates: start: 20181217
  13. LIDOCAINE [Concomitant]
     Active Substance: LIDOCAINE
     Indication: Pain
     Dosage: 1 DF, Q24H
     Route: 062
     Dates: start: 20181228
  14. LORAZEPAM [Concomitant]
     Active Substance: LORAZEPAM
     Indication: Nausea
     Dosage: 0.5 MG, Q6H
     Route: 042
     Dates: start: 20181230, end: 20190107
  15. LORAZEPAM [Concomitant]
     Active Substance: LORAZEPAM
     Dosage: 0.75 MG, Q6H
     Route: 042
     Dates: start: 20190107
  16. ALLOPURINOL [Concomitant]
     Active Substance: ALLOPURINOL
     Indication: Blood uric acid increased
     Dosage: 300 MG, Q12H
     Route: 048
  17. FAMOTIDINE [Concomitant]
     Active Substance: FAMOTIDINE
     Indication: Prophylaxis
     Dosage: 10 MG, Q12H
     Route: 042
  18. METOCLOPRAMIDE [Concomitant]
     Active Substance: METOCLOPRAMIDE
     Indication: Nausea
     Dosage: 1.4 MG, Q6H
     Route: 042
     Dates: start: 20181224, end: 20190103
  19. VITAMINS [Concomitant]
     Active Substance: VITAMINS
     Indication: Product used for unknown indication
     Dosage: 1 ML, Q24H
     Route: 048
     Dates: start: 20181214, end: 20190105
  20. SENNA [Concomitant]
     Active Substance: SENNA LEAF\SENNOSIDES\SENNOSIDES A AND B
     Indication: Constipation
     Dosage: 7.5 ML, Q12H
     Route: 065
  21. URSODIOL [Concomitant]
     Active Substance: URSODIOL
     Indication: Prophylaxis
     Dosage: 300 MG, Q12H
     Route: 048
     Dates: start: 20181217, end: 20190107
  22. IRBESARTAN [Concomitant]
     Active Substance: IRBESARTAN
     Indication: Product used for unknown indication
     Dosage: 1 DF, QD
     Route: 048
  23. HYDROCORTISONE [Concomitant]
     Active Substance: HYDROCORTISONE
     Indication: Product used for unknown indication
     Dosage: 7.5 MG, Q24H
     Route: 048
  24. HYDROCORTISONE [Concomitant]
     Active Substance: HYDROCORTISONE
     Dosage: 5 MG, Q24H
     Route: 048
  25. POLYETHYLENE GLYCOL [Concomitant]
     Active Substance: POLYETHYLENE GLYCOL
     Indication: Constipation
     Dosage: 17 G, Q12H
     Route: 048
     Dates: start: 20181229, end: 20190102
  26. FUROSEMIDE [Concomitant]
     Active Substance: FUROSEMIDE
     Indication: Diuretic therapy
     Dosage: 20 MG, UNK
     Route: 042
  27. FUROSEMIDE [Concomitant]
     Active Substance: FUROSEMIDE
     Dosage: 10 MG, Q12H
     Route: 042
     Dates: start: 20190108
  28. HYDRALAZINE [Concomitant]
     Active Substance: HYDRALAZINE HYDROCHLORIDE
     Indication: Product used for unknown indication
     Dosage: 3.5 MG, Q6H
     Route: 042
  29. ALBUTEROL [Concomitant]
     Active Substance: ALBUTEROL
     Indication: Product used for unknown indication
     Dosage: 2.5 MG, Q4H
     Route: 055
  30. DIPHENHYDRAMINE [Concomitant]
     Active Substance: DIPHENHYDRAMINE
     Indication: Nausea
     Dosage: 15 MG, PRN (33 MG, ONCE/SINGLE)
     Route: 042
     Dates: start: 20190103
  31. NALBUPHINE [Concomitant]
     Active Substance: NALBUPHINE
     Indication: Product used for unknown indication
     Dosage: 3.5 MG, Q6H
     Route: 042
  32. SIMETHICONE (DIMETHICONE) [Concomitant]
     Active Substance: DIMETHICONE
     Indication: Product used for unknown indication
     Dosage: 40 MG, Q6H
     Route: 048
  33. LEVOFLOXACIN [Concomitant]
     Active Substance: LEVOFLOXACIN
     Indication: Pneumonia
     Dosage: UNK
     Route: 065
     Dates: start: 20181224, end: 20190101
  34. BACTRIM [Concomitant]
     Active Substance: SULFAMETHOXAZOLE\TRIMETHOPRIM
     Indication: Prophylaxis
     Dosage: UNK
     Route: 065
  35. ATIVAN [Concomitant]
     Active Substance: LORAZEPAM
     Indication: Nausea
     Dosage: UNK
     Route: 065
  36. ATIVAN [Concomitant]
     Active Substance: LORAZEPAM
     Indication: Vomiting
  37. REGLAN [Concomitant]
     Active Substance: METOCLOPRAMIDE HYDROCHLORIDE
     Indication: Nausea
     Dosage: UNK
     Route: 065
  38. REGLAN [Concomitant]
     Active Substance: METOCLOPRAMIDE HYDROCHLORIDE
     Indication: Vomiting
  39. HYDROXYZINE [Concomitant]
     Active Substance: HYDROXYZINE HYDROCHLORIDE
     Indication: Nausea
     Dosage: UNK
     Route: 065
  40. HYDROXYZINE [Concomitant]
     Active Substance: HYDROXYZINE HYDROCHLORIDE
     Indication: Vomiting
  41. MIRALAX [Concomitant]
     Active Substance: POLYETHYLENE GLYCOL 3350
     Indication: Constipation
     Dosage: UNK UNK, BID
     Route: 065
  42. DIETARY SUPPLEMENT\HERBALS\MILK THISTLE [Concomitant]
     Active Substance: DIETARY SUPPLEMENT\HERBALS\MILK THISTLE
     Indication: Prophylaxis
     Dosage: UNK
     Route: 065
  43. ACETAMINOPHEN [Concomitant]
     Active Substance: ACETAMINOPHEN
     Indication: Pyrexia
     Dosage: 550 MG, ONCE/SINGLE
     Route: 042
     Dates: start: 20181231, end: 20181231
  44. ACETAMINOPHEN [Concomitant]
     Active Substance: ACETAMINOPHEN
     Dosage: 480 MG, Q6H (ORAL LIQUID
     Route: 048
     Dates: start: 20190105, end: 20190106
  45. ACETAMINOPHEN [Concomitant]
     Active Substance: ACETAMINOPHEN
     Dosage: 500 MG, Q6H
     Route: 048
     Dates: start: 20190106, end: 20190107
  46. ACETAMINOPHEN [Concomitant]
     Active Substance: ACETAMINOPHEN
     Dosage: 325 MG, Q4H (TABLET)
     Route: 048
     Dates: start: 20190107, end: 20190107
  47. ACETAMINOPHEN [Concomitant]
     Active Substance: ACETAMINOPHEN
     Dosage: 500 MG, Q6H
     Route: 042
     Dates: start: 20190102, end: 20190104
  48. ACETAMINOPHEN [Concomitant]
     Active Substance: ACETAMINOPHEN
     Dosage: 400 MG, Q4H
     Route: 042
     Dates: start: 20190102, end: 20190103
  49. ACETAMINOPHEN [Concomitant]
     Active Substance: ACETAMINOPHEN
     Dosage: 500 MG, Q6H
     Route: 042
     Dates: start: 20190104, end: 20190105
  50. ACETAMINOPHEN [Concomitant]
     Active Substance: ACETAMINOPHEN
     Dosage: 400 MG, Q4H
     Route: 042
     Dates: start: 20190107, end: 20190107
  51. ACETAMINOPHEN [Concomitant]
     Active Substance: ACETAMINOPHEN
     Dosage: 325 MG, Q4H
     Route: 042
     Dates: start: 20190107
  52. ALBUMIN HUMAN [Concomitant]
     Active Substance: ALBUMIN HUMAN
     Indication: Supplementation therapy
     Dosage: 25 G, ONCE/SINGLE
     Route: 042
     Dates: start: 20190104
  53. ALBUMIN HUMAN [Concomitant]
     Active Substance: ALBUMIN HUMAN
     Dosage: 25 G, ONCE/SINGLE
     Route: 042
     Dates: start: 20190106, end: 20190106
  54. CALCIUM GLUCONATE [Concomitant]
     Active Substance: CALCIUM GLUCONATE
     Indication: Capillary disorder
     Dosage: 1000 MG, QD
     Route: 042
     Dates: start: 20190105, end: 20190107
  55. CEFEPIME [Concomitant]
     Active Substance: CEFEPIME HYDROCHLORIDE
     Indication: Antibiotic therapy
     Dosage: 1690 MG, Q12H
     Route: 042
     Dates: start: 20190107
  56. SULFAMETHOXAZOLE AND TRIMETHOPRIM [Concomitant]
     Active Substance: SULFAMETHOXAZOLE\TRIMETHOPRIM
     Indication: Prophylaxis
     Dosage: 90 MG, UNK
     Route: 048
     Dates: start: 20181230
  57. VANCOMYCIN [Concomitant]
     Active Substance: VANCOMYCIN
     Indication: Product used for unknown indication
     Dosage: 320 MG, Q12H
     Route: 042
     Dates: start: 20081227
  58. VANCOMYCIN [Concomitant]
     Active Substance: VANCOMYCIN
     Dosage: 500 MG, Q6H
     Route: 042
     Dates: start: 20190103, end: 20190104
  59. VANCOMYCIN [Concomitant]
     Active Substance: VANCOMYCIN
     Dosage: 750 MG, Q6H
     Route: 042
     Dates: start: 20190106, end: 20190107
  60. VANCOMYCIN [Concomitant]
     Active Substance: VANCOMYCIN
     Dosage: 550 MG, Q6H
     Route: 042
     Dates: start: 20190104, end: 20190104
  61. VANCOMYCIN [Concomitant]
     Active Substance: VANCOMYCIN
     Dosage: 680 MG, Q6H
     Route: 042
     Dates: start: 20190105, end: 20190106
  62. GRANISETRON [Concomitant]
     Active Substance: GRANISETRON
     Indication: Nausea
     Dosage: 340 UG, Q12H
     Route: 042
     Dates: start: 20190108
  63. SPIRONOLACTONE [Concomitant]
     Active Substance: SPIRONOLACTONE
     Indication: Diuretic therapy
     Dosage: 35 MG, Q12 Q FRI, SAT
     Route: 048
     Dates: start: 20190109
  64. POTASSIUM CHLORIDE [Concomitant]
     Active Substance: POTASSIUM CHLORIDE
     Indication: Product used for unknown indication
     Dosage: 5 MEQ, ONCE/SINGLE
     Route: 042
     Dates: start: 20190105, end: 20190105
  65. POTASSIUM CHLORIDE [Concomitant]
     Active Substance: POTASSIUM CHLORIDE
     Dosage: 8 MEQ, ONCE/SINGLE
     Route: 042
     Dates: start: 20190106, end: 20190106
  66. POTASSIUM CHLORIDE [Concomitant]
     Active Substance: POTASSIUM CHLORIDE
     Dosage: 8 MEQ, ONCE/SINGLE
     Route: 042
     Dates: start: 20190107, end: 20190107
  67. POTASSIUM CHLORIDE [Concomitant]
     Active Substance: POTASSIUM CHLORIDE
     Dosage: 8 MEQ, ONCE/SINGLE
     Route: 042
     Dates: start: 20190108, end: 20190108
  68. POTASSIUM CHLORIDE [Concomitant]
     Active Substance: POTASSIUM CHLORIDE
     Dosage: 17 MEQ, ONCE/SINGLE
     Route: 042
     Dates: start: 20190109, end: 20190109
  69. POTASSIUM CHLORIDE [Concomitant]
     Active Substance: POTASSIUM CHLORIDE
     Dosage: 8 MEQ, ONCE/SINGLE
     Route: 042
     Dates: start: 20190110, end: 20190110
  70. CYPROHEPTADINE [Concomitant]
     Active Substance: CYPROHEPTADINE
     Indication: Product used for unknown indication
     Dosage: UNK
     Route: 065
  71. PEPCID [Concomitant]
     Active Substance: FAMOTIDINE
     Indication: Product used for unknown indication
     Dosage: UNK
     Route: 065
  72. NEURONTIN [Concomitant]
     Active Substance: GABAPENTIN
     Indication: Product used for unknown indication
     Dosage: UNK
     Route: 065
  73. ZANTAC [Concomitant]
     Active Substance: RANITIDINE HYDROCHLORIDE
     Indication: Product used for unknown indication
     Dosage: UNK
     Route: 065

REACTIONS (27)
  - Cytokine release syndrome [Recovered/Resolved]
  - Photophobia [Unknown]
  - Hypotension [Recovering/Resolving]
  - Hypoxia [Unknown]
  - Pyrexia [Recovered/Resolved]
  - Headache [Unknown]
  - Tachycardia [Unknown]
  - Tachypnoea [Unknown]
  - Pericardial effusion [Unknown]
  - Electrocardiogram QT prolonged [Unknown]
  - Cardiac dysfunction [Unknown]
  - Left ventricular dysfunction [Not Recovered/Not Resolved]
  - Therapy non-responder [Not Recovered/Not Resolved]
  - Remission not achieved [Not Recovered/Not Resolved]
  - Stress [Unknown]
  - Chest pain [Unknown]
  - Chest discomfort [Unknown]
  - Bone pain [Unknown]
  - Alopecia [Unknown]
  - Electrocardiogram T wave abnormal [Unknown]
  - Electrocardiogram ST segment abnormal [Unknown]
  - Electrocardiogram QRS complex abnormal [Unknown]
  - Dizziness [Unknown]
  - Asthenia [Unknown]
  - Nausea [Unknown]
  - Myalgia [Unknown]
  - Sinus tachycardia [Unknown]

NARRATIVE: CASE EVENT DATE: 20181231
